FAERS Safety Report 10607390 (Version 1)
Quarter: 2014Q4

REPORT INFORMATION
  Report Type: Report from Study
  Country: NL (occurrence: NL)
  Receive Date: 20141125
  Receipt Date: 20141125
  Transmission Date: 20150529
  Serious: Yes (Hospitalization)
  Sender: FDA-Public Use
  Company Number: NL-TEVA-522840ISR

PATIENT
  Age: 57 Year
  Sex: Female

DRUGS (11)
  1. CHLORTALIDONE [Suspect]
     Active Substance: CHLORTHALIDONE
     Dosage: 25 MILLIGRAM DAILY;
     Dates: start: 20140630
  2. MYOCET [Suspect]
     Active Substance: DOXORUBICIN
     Dosage: 0 MILLIGRAM DAILY;
  3. BEVACIZUMAB [Suspect]
     Active Substance: BEVACIZUMAB
     Indication: BREAST CANCER METASTATIC
     Dosage: 850 MILLIGRAM DAILY;
     Route: 042
     Dates: start: 20140805, end: 20141014
  4. CA/VITD [Concomitant]
     Dosage: 500/400
     Dates: start: 20120926
  5. METAMUCIL [Concomitant]
     Active Substance: PLANTAGO SEED
     Dates: start: 20140630
  6. PACLITAXEL. [Suspect]
     Active Substance: PACLITAXEL
     Indication: BREAST CANCER METASTATIC
     Dosage: 169 MILLIGRAM DAILY;
     Route: 042
     Dates: start: 20140805, end: 20141014
  7. TEMAZEPAM. [Concomitant]
     Active Substance: TEMAZEPAM
     Dosage: 10 MILLIGRAM DAILY;
     Dates: start: 20140826
  8. OMEPRAZOL [Concomitant]
     Active Substance: OMEPRAZOLE
  9. FENTANYL. [Concomitant]
     Active Substance: FENTANYL
     Dosage: 25 MICROGRAM DAILY;
     Dates: start: 20140901
  10. CETIRIZINE [Concomitant]
     Active Substance: CETIRIZINE HYDROCHLORIDE
     Dosage: 10 MILLIGRAM DAILY;
  11. PARACETAMOL [Concomitant]
     Active Substance: ACETAMINOPHEN
     Dates: start: 20140722

REACTIONS (1)
  - Hypokalaemia [Recovered/Resolved]

NARRATIVE: CASE EVENT DATE: 20141014
